FAERS Safety Report 5673854-9 (Version None)
Quarter: 2008Q2

REPORT INFORMATION
  Report Type: 
  Country: None (occurrence: None)
  Receive Date: 20080226
  Receipt Date: 20070105
  Transmission Date: 20081010
  Serious: Yes (Other)
  Sender: FDA-Public Use
  Company Number: 471116

PATIENT
  Age: 16 Year
  Sex: Male
  Weight: 61.7 kg

DRUGS (3)
  1. ACCUTANE [Suspect]
     Indication: ACNE
     Dosage: 40 MG DAILY ORAL
     Route: 048
     Dates: start: 20060515, end: 20061102
  2. ASACOL (MESALMINE) [Concomitant]
  3. UNSPECIFIED DRUGS (GENERIC UNKNOWN) [Concomitant]

REACTIONS (1)
  - COLITIS [None]
